FAERS Safety Report 12758920 (Version 1)
Quarter: 2016Q3

REPORT INFORMATION
  Report Type: Spontaneous
  Country: US (occurrence: US)
  Receive Date: 20160919
  Receipt Date: 20160919
  Transmission Date: 20161109
  Serious: Yes (Disabling)
  Sender: FDA-Public Use
  Company Number: None

PATIENT
  Age: 41 Year
  Sex: Female
  Weight: 65.25 kg

DRUGS (14)
  1. SAVELLA [Concomitant]
     Active Substance: MILNACIPRAN HYDROCHLORIDE
  2. VITAMIN D3 [Concomitant]
     Active Substance: CHOLECALCIFEROL
  3. 5-HTP [Concomitant]
     Active Substance: OXITRIPTAN
  4. IRON [Concomitant]
     Active Substance: IRON
  5. BIOTIN [Concomitant]
     Active Substance: BIOTIN
  6. FOLIC ACID. [Concomitant]
     Active Substance: FOLIC ACID
  7. TRAMADOL. [Concomitant]
     Active Substance: TRAMADOL
  8. BOTOX [Suspect]
     Active Substance: ONABOTULINUMTOXINA
     Indication: MIGRAINE
     Dosage: OTHER STRENGTH:;OTHER DOSE:;OTHER FREQUENCY:EVERY 12 WEEKS.;OTHER ROUTE:
     Route: 058
     Dates: start: 20160815, end: 20160815
  9. MAXALT [Concomitant]
     Active Substance: RIZATRIPTAN BENZOATE
  10. ARMOUR THYROID [Concomitant]
     Active Substance: THYROID, PORCINE
  11. FIORICET [Concomitant]
     Active Substance: ACETAMINOPHEN\BUTALBITAL\CAFFEINE
  12. TOPAMAX [Concomitant]
     Active Substance: TOPIRAMATE
  13. OMEGA 3 [Concomitant]
     Active Substance: OMEGA-3 FATTY ACIDS
  14. ZYRTEC [Concomitant]
     Active Substance: CETIRIZINE HYDROCHLORIDE

REACTIONS (14)
  - Fatigue [None]
  - Neck pain [None]
  - Nausea [None]
  - Muscular weakness [None]
  - Pruritus [None]
  - Malaise [None]
  - Abdominal pain upper [None]
  - Diarrhoea [None]
  - Decreased appetite [None]
  - Influenza [None]
  - Myalgia [None]
  - Facial paralysis [None]
  - Anxiety [None]
  - Migraine [None]

NARRATIVE: CASE EVENT DATE: 20160815
